FAERS Safety Report 7095790-6 (Version None)
Quarter: 2010Q4

REPORT INFORMATION
  Report Type: 
  Country: None (occurrence: None)
  Receive Date: 20101111
  Receipt Date: 20101102
  Transmission Date: 20110411
  Serious: Yes (Other)
  Sender: FDA-Public Use
  Company Number: ES-ASTRAZENECA-2010SE52265

PATIENT
  Age: 65 Year
  Sex: Female
  Weight: 78 kg

DRUGS (5)
  1. SYMBICORT [Suspect]
     Dosage: 80/4.5 UG TWO INHALATIONS/ 12 H
     Route: 055
     Dates: start: 20100621, end: 20100623
  2. NORMAST [Suspect]
     Route: 048
  3. NORMAST [Suspect]
     Route: 048
     Dates: start: 20100621, end: 20100623
  4. HIDROXIL B12 B6 B1 [Concomitant]
     Route: 048
     Dates: end: 20091010
  5. NASONEX [Concomitant]
     Indication: RHINITIS ALLERGIC
     Route: 045
     Dates: start: 20091001

REACTIONS (3)
  - LIP SWELLING [None]
  - PRURITUS [None]
  - RASH GENERALISED [None]
